FAERS Safety Report 4988310-0 (Version None)
Quarter: 2006Q2

REPORT INFORMATION
  Report Type: 
  Country: None (occurrence: None)
  Receive Date: 20060425
  Receipt Date: 20060412
  Transmission Date: 20061013
  Serious: Yes (Other)
  Sender: FDA-Public Use
  Company Number: 2004210694BR

PATIENT
  Age: 11 Year
  Sex: Male

DRUGS (1)
  1. GENOTROPIN [Suspect]
     Indication: BODY HEIGHT BELOW NORMAL
     Dosage: 0.7 MG (0.7 MG, 1 IN 1 D), SUBCUTANEOUS
     Route: 058
     Dates: start: 20000410, end: 20040101

REACTIONS (4)
  - ANGIOPATHY [None]
  - BONE DISORDER [None]
  - OSTEONECROSIS [None]
  - PAIN [None]
